FAERS Safety Report 19695384 (Version 2)
Quarter: 2021Q3

REPORT INFORMATION
  Report Type: Spontaneous
  Country: US (occurrence: US)
  Receive Date: 20210813
  Receipt Date: 20210831
  Transmission Date: 20211014
  Serious: No
  Sender: FDA-Public Use
  Company Number: US-ORGANON-O2108USA000905

PATIENT
  Age: 18 Year
  Sex: Female
  Weight: 152.83 kg

DRUGS (1)
  1. NEXPLANON [Suspect]
     Active Substance: ETONOGESTREL
     Dosage: 68 MG ONCE; LEFT UPPER ARM; NON DOMINANT ARM; APPROXIMATELY 9 CM FROM THE MEDIAL EPICONDYLE OF THE H
     Dates: start: 20210805, end: 20210805

REACTIONS (3)
  - Complication of device insertion [Recovered/Resolved]
  - Product quality issue [Unknown]
  - No adverse event [Unknown]

NARRATIVE: CASE EVENT DATE: 20210805
